FAERS Safety Report 6914993-1 (Version None)
Quarter: 2010Q3

REPORT INFORMATION
  Report Type: 
  Country: None (occurrence: None)
  Receive Date: 20100809
  Receipt Date: 20100802
  Transmission Date: 20110219
  Serious: Yes (Other)
  Sender: FDA-Public Use
  Company Number: CHPA2010US12465

PATIENT
  Age: 63 Year
  Sex: Male

DRUGS (2)
  1. BENEFIBER W/ WHEAT DEXTRIN (NCH) [Suspect]
     Indication: BOWEL MOVEMENT IRREGULARITY
     Dosage: 4 TSP, QD
     Route: 048
  2. LISINOPRIL [Concomitant]
     Indication: BLOOD PRESSURE INCREASED

REACTIONS (3)
  - GAIT DISTURBANCE [None]
  - GOUT [None]
  - OFF LABEL USE [None]
